FAERS Safety Report 6319938-3 (Version None)
Quarter: 2009Q3

REPORT INFORMATION
  Report Type: 
  Country: None (occurrence: None)
  Receive Date: 20090822
  Receipt Date: 20081015
  Transmission Date: 20100115
  Serious: No
  Sender: FDA-Public Use
  Company Number: US-ABBOTT-08P-163-0481467-00

PATIENT
  Sex: Female

DRUGS (1)
  1. NIASPAN [Suspect]
     Indication: BLOOD CHOLESTEROL INCREASED
     Dates: start: 20081004, end: 20081006

REACTIONS (4)
  - FLUSHING [None]
  - HYPERSENSITIVITY [None]
  - PRURITUS [None]
  - RASH MACULAR [None]
